FAERS Safety Report 15788419 (Version 1)
Quarter: 2019Q1

REPORT INFORMATION
  Report Type: Spontaneous
  Country: US (occurrence: US)
  Receive Date: 20190104
  Receipt Date: 20190104
  Transmission Date: 20190417
  Serious: Yes (Other)
  Sender: FDA-Public Use
  Company Number: US-BEH-2018098037

PATIENT
  Age: 63 Year
  Sex: Female
  Weight: 98.41 kg

DRUGS (2)
  1. PRIVIGEN [Suspect]
     Active Substance: HUMAN IMMUNOGLOBULIN G
     Indication: CHRONIC INFLAMMATORY DEMYELINATING POLYRADICULONEUROPATHY
     Dosage: 20 G, QOW
     Route: 042
     Dates: start: 20180829
  2. PRIVIGEN [Suspect]
     Active Substance: HUMAN IMMUNOGLOBULIN G
     Indication: MYASTHENIA GRAVIS

REACTIONS (8)
  - Hypoaesthesia [Unknown]
  - Burning sensation [Unknown]
  - Anxiety [Unknown]
  - Dyspnoea [Unknown]
  - Nausea [Unknown]
  - Headache [Unknown]
  - Muscular weakness [Unknown]
  - Dizziness [Unknown]

NARRATIVE: CASE EVENT DATE: 20181212
